FAERS Safety Report 19531567 (Version 1)
Quarter: 2021Q3

REPORT INFORMATION
  Report Type: Spontaneous
  Country: JP (occurrence: JP)
  Receive Date: 20210713
  Receipt Date: 20210713
  Transmission Date: 20211014
  Serious: Yes (Hospitalization)
  Sender: FDA-Public Use
  Company Number: NVSJ2021JP010323

PATIENT
  Age: 83 Year
  Sex: Female

DRUGS (2)
  1. EXELON PATCH [Suspect]
     Active Substance: RIVASTIGMINE
     Dosage: CUT 4.5 MG IN HALF AND USE 2.25 MG A DAY
     Route: 062
  2. EXELON PATCH [Suspect]
     Active Substance: RIVASTIGMINE
     Indication: PRODUCT USED FOR UNKNOWN INDICATION
     Dosage: PATCH2.5(CM2)
     Route: 062

REACTIONS (3)
  - Urinary tract infection [Unknown]
  - Cardiac failure [Unknown]
  - Wrong technique in product usage process [Unknown]
